FAERS Safety Report 4736233-4 (Version None)
Quarter: 2005Q3

REPORT INFORMATION
  Report Type: 
  Country: None (occurrence: None)
  Receive Date: 20050808
  Receipt Date: 20050518
  Transmission Date: 20060218
  Serious: Yes (Death)
  Sender: FDA-Public Use
  Company Number: PHBS2005JP07077

PATIENT
  Age: 63 Year
  Sex: Female
  Weight: 43 kg

DRUGS (11)
  1. PREDONINE [Suspect]
     Indication: LUPUS NEPHRITIS
     Dosage: 25 MG/D
     Route: 048
     Dates: start: 20040529
  2. NEORAL [Suspect]
     Indication: LUPUS NEPHRITIS
     Dosage: 140 MG/D
     Route: 048
     Dates: start: 20040609, end: 20040612
  3. LASIX [Concomitant]
     Dosage: 20 MG/D
     Route: 048
     Dates: start: 20040605
  4. ALFAROL [Concomitant]
     Dosage: 1 UG/D
     Route: 048
     Dates: start: 19980101
  5. THYRADIN S [Concomitant]
     Dosage: 50 MG/D
     Route: 048
     Dates: start: 19980101
  6. BAKTAR [Concomitant]
     Dosage: 480 MG/D
     Route: 048
     Dates: start: 19980101
  7. CYANOCOBALAMIN [Concomitant]
     Dosage: 1500 UG/D
     Route: 048
     Dates: start: 19980101
  8. MEVALOTIN [Concomitant]
     Dosage: 20 MG/D
     Route: 048
     Dates: start: 19980101
  9. NITOROL [Concomitant]
     Dosage: 60 MG/D
     Route: 048
     Dates: start: 19980101
  10. HERBESSOR R [Concomitant]
     Dosage: 900 UG/D
     Route: 048
     Dates: start: 19980101
  11. SOLU-MEDROL [Suspect]
     Indication: LUPUS NEPHRITIS
     Dosage: 1000 MG/D
     Route: 041
     Dates: start: 20040612, end: 20040614

REACTIONS (11)
  - ANURIA [None]
  - BRONCHOPULMONARY ASPERGILLOSIS [None]
  - DISSEMINATED TUBERCULOSIS [None]
  - DYSPNOEA [None]
  - GASTROINTESTINAL HAEMORRHAGE [None]
  - HEPATIC FUNCTION ABNORMAL [None]
  - HISTIOCYTOSIS HAEMATOPHAGIC [None]
  - METABOLIC ACIDOSIS [None]
  - PANCYTOPENIA [None]
  - PYREXIA [None]
  - SHOCK [None]
